FAERS Safety Report 4831835-9 (Version None)
Quarter: 2005Q4

REPORT INFORMATION
  Report Type: 
  Country: None (occurrence: None)
  Receive Date: 20051118
  Receipt Date: 20051116
  Transmission Date: 20060501
  Serious: Yes (Death)
  Sender: FDA-Public Use
  Company Number: JP-SANOFI-SYNTHELABO-F01200502453

PATIENT
  Sex: Male
  Weight: 61 kg

DRUGS (4)
  1. OXALIPLATIN [Suspect]
     Indication: COLON CANCER
     Dosage: 100 MG/BODY=61.3MG/M2, INFUSION D1
     Route: 042
     Dates: start: 20050523, end: 20050523
  2. OXALIPLATIN [Suspect]
     Dosage: 140 MG/BODY=85.9 MG/M2,
     Route: 042
     Dates: start: 20050606, end: 20050606
  3. FLUOROURACIL [Suspect]
     Dosage: 625 MG/BODY=383.4 MG/M2 IN BOLUS THEN 1000MG/BODY=613.5 MG/M2 AS CONTINUOUS INFUSION, D1+2
     Route: 042
     Dates: start: 20050606, end: 20050607
  4. CALCIUM LEVOFOLINATE [Suspect]
     Dosage: 150 MG/BODY=92 MG/M2, INFUSION D1+2
     Route: 042
     Dates: start: 20050606, end: 20050607

REACTIONS (1)
  - INTERSTITIAL LUNG DISEASE [None]
